FAERS Safety Report 22221423 (Version 1)
Quarter: 2023Q2

REPORT INFORMATION
  Report Type: Spontaneous
  Country: FR (occurrence: FR)
  Receive Date: 20230418
  Receipt Date: 20230418
  Transmission Date: 20230721
  Serious: Yes (Hospitalization)
  Sender: FDA-Public Use
  Company Number: None

PATIENT
  Age: 88 Year
  Sex: Male
  Weight: 82 kg

DRUGS (5)
  1. ALLOPURINOL [Suspect]
     Active Substance: ALLOPURINOL
     Indication: Hyperuricaemia
     Dates: end: 20230125
  2. AMOXICILLIN [Suspect]
     Active Substance: AMOXICILLIN
     Indication: Lung disorder
     Dosage: DOSAGE UNKNOWN
     Dates: start: 20221226, end: 20230102
  3. LOSARTAN POTASSIUM [Suspect]
     Active Substance: LOSARTAN POTASSIUM
     Indication: Hypertension
     Dates: end: 20230125
  4. BILASTINE [Suspect]
     Active Substance: BILASTINE
     Indication: Rhinitis allergic
     Dates: end: 20230125
  5. COMIRNATY [Suspect]
     Active Substance: TOZINAMERAN
     Indication: COVID-19 immunisation
     Dosage: R3B,OMICRON BA.4-5 (15/15 MICROGRAMS)/DOSE, DISPERSION FOR INJECTION - MRNA (MODIFIED NUCLEOSIDE) CO
     Dates: start: 20230110, end: 20230110

REACTIONS (2)
  - Rash [Recovered/Resolved]
  - Eosinophilia [Recovering/Resolving]

NARRATIVE: CASE EVENT DATE: 20230125
